FAERS Safety Report 6252785-X (Version None)
Quarter: 2009Q3

REPORT INFORMATION
  Report Type: 
  Country: None (occurrence: None)
  Receive Date: 20090701
  Receipt Date: 20090622
  Transmission Date: 20100115
  Serious: Yes (Hospitalization, Other)
  Sender: FDA-Public Use
  Company Number: US-AMGEN-US352746

PATIENT
  Sex: Female

DRUGS (1)
  1. ENBREL [Suspect]
     Indication: DRUG USE FOR UNKNOWN INDICATION
     Route: 065
     Dates: start: 20060101, end: 20071001

REACTIONS (9)
  - ACTIVITIES OF DAILY LIVING IMPAIRED [None]
  - EMOTIONAL DISORDER [None]
  - HOSPITALISATION [None]
  - IMPAIRED WORK ABILITY [None]
  - INJURY [None]
  - MENTAL DISABILITY [None]
  - MENTAL DISORDER [None]
  - PHYSICAL DISABILITY [None]
  - SURGERY [None]
